FAERS Safety Report 6415794-3 (Version None)
Quarter: 2009Q4

REPORT INFORMATION
  Report Type: 
  Country: None (occurrence: None)
  Receive Date: 20091027
  Receipt Date: 20091015
  Transmission Date: 20100525
  Serious: Yes (Hospitalization)
  Sender: FDA-Public Use
  Company Number: FR-PFIZER INC-2009283598

PATIENT
  Age: 77 Year

DRUGS (15)
  1. ZYVOXID [Suspect]
     Dosage: 600 MG, 2X/DAY
     Route: 048
     Dates: start: 20090801, end: 20090814
  2. TRAMADOL HYDROCHLORIDE AND ACETAMINOPHEN [Suspect]
     Indication: ANALGESIC THERAPY
     Dosage: 2 DF, 3X/DAY
     Route: 048
     Dates: start: 20090801, end: 20090811
  3. NEURONTIN [Concomitant]
     Indication: ANALGESIC THERAPY
     Dosage: UNK
     Route: 048
     Dates: start: 20090801
  4. TRIFLUCAN [Concomitant]
  5. ACUPAN [Concomitant]
     Indication: ANALGESIC THERAPY
     Dosage: UNK
     Route: 048
     Dates: start: 20090801
  6. INSULIN [Concomitant]
     Indication: TYPE 1 DIABETES MELLITUS
     Dosage: UNK
     Dates: start: 19440101
  7. PLAVIX [Concomitant]
  8. ASPEGIC 1000 [Concomitant]
  9. NEXIUM [Concomitant]
  10. TRIATEC [Concomitant]
  11. CARDENSIEL [Concomitant]
  12. LASILIX [Concomitant]
  13. LOVENOX [Concomitant]
  14. TAZOCILLINE [Concomitant]
  15. CIFLOX [Concomitant]

REACTIONS (2)
  - DECREASED INSULIN REQUIREMENT [None]
  - HYPOGLYCAEMIA [None]
